FAERS Safety Report 6759587-6 (Version None)
Quarter: 2010Q2

REPORT INFORMATION
  Report Type: 
  Country: None (occurrence: None)
  Receive Date: 20100608
  Receipt Date: 20100525
  Transmission Date: 20101027
  Serious: Yes (Other)
  Sender: FDA-Public Use
  Company Number: GB-MYLANLABS-2010S1009205

PATIENT
  Age: 77 Year
  Sex: Male

DRUGS (3)
  1. METHOTREXATE [Suspect]
     Indication: PLASMACYTOSIS
     Route: 065
  2. TACROLIMUS [Suspect]
     Indication: PLASMACYTOSIS
     Route: 065
  3. BETAMETHASONE [Suspect]
     Indication: PLASMACYTOSIS
     Route: 061

REACTIONS (1)
  - SQUAMOUS CELL CARCINOMA [None]
